FAERS Safety Report 5936657-3 (Version None)
Quarter: 2008Q4

REPORT INFORMATION
  Report Type: 
  Country: None (occurrence: None)
  Receive Date: 20081021
  Receipt Date: 20071008
  Transmission Date: 20090506
  Serious: No
  Sender: FDA-Public Use
  Company Number: HQWYE419307AUG07

PATIENT
  Age: 66 Year
  Sex: Female

DRUGS (2)
  1. PREMARIN [Suspect]
     Indication: HORMONE REPLACEMENT THERAPY
     Dosage: 0.45 MG 1X PER 1 DAY, ORAL
     Route: 048
     Dates: start: 20060806
  2. CELEXA [Concomitant]

REACTIONS (3)
  - DRUG INEFFECTIVE [None]
  - MEDICATION RESIDUE [None]
  - PRODUCT QUALITY ISSUE [None]
